FAERS Safety Report 8881236 (Version 1)
Quarter: 2012Q4

REPORT INFORMATION
  Report Type: 
  Country: SE (occurrence: SE)
  Receive Date: 20121031
  Receipt Date: 20121031
  Transmission Date: 20130627
  Serious: Yes (Other)
  Sender: FDA-Public Use
  Company Number: PHHY2012SE096061

PATIENT
  Sex: Male

DRUGS (5)
  1. CERTICAN [Suspect]
  2. ANTITHYMOCYTE IMMUNOGLOBULIN [Concomitant]
     Indication: LUNG TRANSPLANT
  3. CICLOSPORIN [Concomitant]
     Indication: LUNG TRANSPLANT
  4. AZATHIOPRINE [Concomitant]
     Indication: LUNG TRANSPLANT
  5. PREDNISOLONE [Concomitant]
     Indication: LUNG TRANSPLANT

REACTIONS (3)
  - Interstitial lung disease [Not Recovered/Not Resolved]
  - Cough [Not Recovered/Not Resolved]
  - Pulmonary function test decreased [Not Recovered/Not Resolved]
